FAERS Safety Report 16448967 (Version 1)
Quarter: 2019Q2

REPORT INFORMATION
  Report Type: Spontaneous
  Country: FR (occurrence: FR)
  Receive Date: 20190619
  Receipt Date: 20190619
  Transmission Date: 20190711
  Serious: Yes (Other)
  Sender: FDA-Public Use
  Company Number: FR-AUROBINDO-AUR-APL-2019-034252

PATIENT

DRUGS (6)
  1. ONDANSETRON [Suspect]
     Active Substance: ONDANSETRON
     Indication: PROPHYLAXIS OF NAUSEA AND VOMITING
     Dosage: 8 MILLIGRAM
     Route: 042
     Dates: start: 20190110
  2. EMEND [Interacting]
     Active Substance: APREPITANT
     Indication: PROPHYLAXIS OF NAUSEA AND VOMITING
     Dosage: 3 DOSAGE FORM, CYCLICAL
     Route: 042
     Dates: start: 20190110
  3. EPIRUBICINE [Concomitant]
     Active Substance: EPIRUBICIN
     Indication: BREAST CANCER
     Dosage: 150 MILLIGRAM, CYCLICAL
     Route: 042
     Dates: start: 20190110
  4. GINSENG [Interacting]
     Active Substance: ASIAN GINSENG
     Indication: PHYTOTHERAPY
     Dosage: UNK
     Route: 048
     Dates: end: 20190228
  5. CYCLOPHOSPHAMIDE. [Interacting]
     Active Substance: CYCLOPHOSPHAMIDE
     Indication: BREAST CANCER
     Dosage: 750 MILLIGRAM, CYCLICAL
     Route: 042
     Dates: start: 20190110
  6. FLUOROURACILE [Concomitant]
     Active Substance: FLUOROURACIL
     Indication: BREAST CANCER
     Dosage: 750 MILLIGRAM, CYCLICAL
     Route: 042
     Dates: start: 20190110

REACTIONS (1)
  - Hepatocellular injury [Recovered/Resolved]

NARRATIVE: CASE EVENT DATE: 20190129
